FAERS Safety Report 17283357 (Version 3)
Quarter: 2020Q1

REPORT INFORMATION
  Report Type: Spontaneous
  Country: DE (occurrence: DE)
  Receive Date: 20200117
  Receipt Date: 20200317
  Transmission Date: 20200409
  Serious: Yes (Other)
  Sender: FDA-Public Use
  Company Number: DE-IBIGEN-2020.08120

PATIENT
  Age: 81 Year
  Sex: Female

DRUGS (22)
  1. LYRICA [Concomitant]
     Active Substance: PREGABALIN
     Dosage: 100MG  [08:00 A.M]
     Route: 048
  2. BISOPROLOL [Concomitant]
     Active Substance: BISOPROLOL
     Dosage: 1.25 MG [08:00 A.M, 08:00 P.M] DEPENDING ON BLOOD  PRESSURE
     Route: 048
  3. INHIXA, ENOXAPARIN SODIUM [Concomitant]
     Dosage: 20 MG [07:00 P.M]
  4. PIPERACILLIN/TAZOBACTAM [Suspect]
     Active Substance: PIPERACILLIN SODIUM\TAZOBACTAM SODIUM
     Indication: INTERVERTEBRAL DISCITIS
     Route: 042
     Dates: start: 20191202, end: 20191205
  5. KALINOR EFFERVESCENT TABLETS [Concomitant]
  6. STANGYL, TRIMIPRAMINE [Concomitant]
     Dosage: 100MG  [08:00 A.M]
     Route: 048
  7. AMPICILLIN/SULBACTAM [Concomitant]
     Active Substance: AMPICILLIN SODIUM\SULBACTAM SODIUM
     Dosage: 3G [8:00 A.M,8:00 P.M]
     Route: 042
     Dates: start: 20191128, end: 20191201
  8. NOVALGIN, METAMIZOLE, P.O [Concomitant]
     Dosage: 40 [DRP]    AS REQUIRED
     Route: 048
  9. JONOSTERIL [Concomitant]
  10. AMLODIPIN [Concomitant]
     Active Substance: AMLODIPINE BESYLATE
     Dosage: 2.5 MG [08:00 A.M, 08:00 P.M] DEPENDING ON BLOOD  PRESSURE
  11. ANTRA, OMEPRAZOLE [Concomitant]
     Dosage: 40 MG  [08:00 A.M]
  12. BICANORM [Concomitant]
     Active Substance: SODIUM BICARBONATE
     Dosage: 2 TABLETS [07:00 A.M, 03:00 P.M, 10:00 P.M]
  13. ASS, ACETYLSALICYLIC ACID [Interacting]
     Active Substance: ASPIRIN
     Dosage: 100 MG [12:00 P.M]
  14. AMPICILLIN/SULBACTAM [Concomitant]
     Active Substance: AMPICILLIN SODIUM\SULBACTAM SODIUM
     Dosage: 3G [8:00 A.M,8:00 P.M]
     Route: 042
     Dates: start: 20191206, end: 20191213
  15. JONO BOLUS [Concomitant]
  16. VIGANTOLETTEN, COLECALCIFEROL, VITAMIN D, [Concomitant]
     Dosage: 1000IU [08:00 A.M]
     Route: 048
  17. TAZOBAC [Concomitant]
     Active Substance: PIPERACILLIN SODIUM\TAZOBACTAM SODIUM
     Route: 042
  18. BAYOTENSIN PHIAL [Concomitant]
  19. JODETTEN [Concomitant]
     Dosage: 150UG [08:00 A.M]
  20. L-THYROXIN [Concomitant]
     Active Substance: LEVOTHYROXINE SODIUM
     Dosage: 50UG [08:00 A.M]
  21. FRESUBIN [Concomitant]
     Active Substance: AMINO ACIDS\DEXTROSE\ELECTROLYTES NOS\SOYBEAN OIL\VITAMINS
     Dosage: 200 ML [07:00 A.M, 01:00 P.M, 07:00 P.M]
  22. SIMVASTATIN. [Concomitant]
     Active Substance: SIMVASTATIN
     Dosage: 20 MG [08:00 P.M]
     Route: 048

REACTIONS (1)
  - Diabetes insipidus [Recovered/Resolved]

NARRATIVE: CASE EVENT DATE: 201912
